FAERS Safety Report 24100323 (Version 2)
Quarter: 2024Q3

REPORT INFORMATION
  Report Type: Spontaneous
  Country: DE (occurrence: DE)
  Receive Date: 20240717
  Receipt Date: 20240720
  Transmission Date: 20241016
  Serious: Yes (Hospitalization)
  Sender: SANDOZ
  Company Number: DE-TORRENT-00026956

PATIENT
  Age: 32 Year
  Sex: Male
  Weight: 78 kg

DRUGS (3)
  1. QUETIAPINE [Suspect]
     Active Substance: QUETIAPINE
     Indication: Product used for unknown indication
     Dosage: 2 DF, QD AT HOME: HALF A TABLET TWICE DAILY (MORNING + EVENING)
     Route: 065
  2. QUETIAPINE [Suspect]
     Active Substance: QUETIAPINE
     Indication: Depression
     Dosage: ONE TABLET 4 TIMES DAILY FOR 5 WEEKS
     Route: 065
     Dates: start: 20240510
  3. MIRTAZAPINE [Concomitant]
     Active Substance: MIRTAZAPINE
     Indication: Product used for unknown indication
     Dosage: UNK
     Route: 065
     Dates: start: 20240510

REACTIONS (3)
  - Blood pressure fluctuation [Unknown]
  - Heart rate increased [Unknown]
  - Blood potassium decreased [Unknown]
